FAERS Safety Report 4367453-9 (Version None)
Quarter: 2004Q2

REPORT INFORMATION
  Report Type: 
  Country: None (occurrence: None)
  Receive Date: 20040528
  Receipt Date: 20031104
  Transmission Date: 20050107
  Serious: Yes (Hospitalization)
  Sender: FDA-Public Use
  Company Number: CIP03003040

PATIENT
  Age: 90 Year
  Sex: Female

DRUGS (5)
  1. ACTONEL [Suspect]
     Dosage: 35 MG ONCE WEEKLY FOR 2-4 DOSES, ORAL
     Route: 048
     Dates: start: 20031001, end: 20031001
  2. VIOXX [Suspect]
     Dosage: AS NEEDED
     Dates: end: 20031001
  3. ZYPREXA [Concomitant]
  4. ARICEPT [Concomitant]
  5. PROZAC [Concomitant]

REACTIONS (2)
  - GASTROINTESTINAL HAEMORRHAGE [None]
  - HAEMATEMESIS [None]
